FAERS Safety Report 4433858-0 (Version None)
Quarter: 2004Q3

REPORT INFORMATION
  Report Type: 
  Country: None (occurrence: None)
  Receive Date: 20040826
  Receipt Date: 19981022
  Transmission Date: 20050211
  Serious: Yes (Disabling, Congenital Anomaly, Other)
  Sender: FDA-Public Use
  Company Number: FR-GLAXOSMITHKLINE-B0060841A

PATIENT
  Age: 1 Day
  Sex: Male
  Weight: 3.61 kg

DRUGS (15)
  1. AZT [Suspect]
     Indication: ANTIVIRAL PROPHYLAXIS
     Dosage: .7ML FOUR TIMES PER DAY
     Route: 048
     Dates: start: 19980619
  2. EPIVIR [Suspect]
     Indication: ANTIVIRAL PROPHYLAXIS
     Dosage: .7ML TWICE PER DAY
     Route: 048
     Dates: start: 19980619
  3. AZT [Suspect]
     Dates: start: 19980619, end: 19980619
  4. EPIVIR [Suspect]
     Indication: HIV INFECTION
     Dosage: 300MG PER DAY
     Dates: start: 19960101, end: 19980619
  5. STAVUDINE [Suspect]
     Indication: HIV INFECTION
     Dosage: 80MG PER DAY
     Dates: start: 19960101, end: 19980619
  6. MAGNESIUM [Concomitant]
     Dates: start: 19980101
  7. TOCOPHEROL CONCENTRATE CAP [Concomitant]
     Dates: start: 19980319
  8. GAVISCON [Concomitant]
     Dates: start: 19980101
  9. UVESTEROL [Concomitant]
     Dates: start: 19980319
  10. EUPHYTOSE [Concomitant]
     Dates: start: 19980319
  11. METOCLOPRAMIDE [Concomitant]
     Indication: GASTROENTERITIS
     Dates: start: 19980501
  12. DIOSMECTITE [Concomitant]
     Indication: GASTROENTERITIS
     Dates: start: 19980501
  13. MARCAINE [Concomitant]
     Dates: start: 19980619, end: 19980619
  14. MORPHINE [Concomitant]
     Dates: start: 19980619, end: 19980619
  15. CATAPRES [Concomitant]
     Dates: start: 19980619, end: 19980619

REACTIONS (6)
  - ALBUMINURIA [None]
  - BLOOD LACTIC ACID INCREASED [None]
  - DRUG EXPOSURE DURING PREGNANCY [None]
  - HYPERKALAEMIA [None]
  - HYPERLACTACIDAEMIA [None]
  - HYPOSPADIAS [None]
